APPROVED DRUG PRODUCT: PENCICLOVIR
Active Ingredient: PENCICLOVIR
Strength: 1%
Dosage Form/Route: CREAM;TOPICAL
Application: A216981 | Product #001 | TE Code: BX
Applicant: TORRENT PHARMACEUTICALS LTD
Approved: Aug 7, 2023 | RLD: No | RS: No | Type: RX